FAERS Safety Report 4983834-4 (Version None)
Quarter: 2006Q2

REPORT INFORMATION
  Report Type: 
  Country: None (occurrence: None)
  Receive Date: 20060426
  Receipt Date: 20051207
  Transmission Date: 20061013
  Serious: Yes (Hospitalization)
  Sender: FDA-Public Use
  Company Number: US-MERCK-0512USA01051

PATIENT
  Age: 79 Year
  Sex: Male
  Weight: 75 kg

DRUGS (31)
  1. VIOXX [Suspect]
     Indication: OSTEOARTHRITIS
     Route: 048
     Dates: start: 20000101, end: 20011101
  2. ISOSORBIDE [Concomitant]
     Route: 065
  3. FEXOFENADINE HYDROCHLORIDE [Concomitant]
     Route: 065
  4. FELODIPINE [Concomitant]
     Route: 065
  5. FUROSEMIDE [Concomitant]
     Route: 065
  6. FLUNISOLIDE [Concomitant]
     Route: 065
  7. COMBIVENT [Concomitant]
     Route: 065
  8. DIOVAN [Concomitant]
     Route: 065
  9. AMIODARONE [Concomitant]
     Route: 065
  10. ZETIA [Concomitant]
     Route: 065
  11. NITRO [Concomitant]
     Route: 065
  12. NITRO [Concomitant]
     Route: 065
  13. BENADRYL [Concomitant]
     Route: 065
  14. RABEPRAZOLE SODIUM [Concomitant]
     Route: 065
  15. CRESTOR [Concomitant]
     Route: 065
  16. TRICOR [Concomitant]
     Route: 065
  17. LEVOXYL [Concomitant]
     Route: 065
  18. DOCUSATE SODIUM [Concomitant]
     Route: 065
  19. SODIUM CHLORIDE [Concomitant]
     Route: 065
  20. METAMUCIL [Concomitant]
     Route: 065
  21. GAS-X [Concomitant]
     Route: 065
  22. ECOTRIN [Concomitant]
     Route: 065
  23. TYLENOL (CAPLET) [Concomitant]
     Route: 065
  24. ADVIL [Concomitant]
     Route: 065
  25. CLOTRIMAZOLE [Concomitant]
     Route: 065
  26. HYDROCORTISONE [Concomitant]
     Route: 065
  27. ASCORBIC ACID [Concomitant]
     Route: 065
  28. VITAMINS (UNSPECIFIED) [Concomitant]
     Route: 065
  29. NIZORAL [Concomitant]
     Route: 065
  30. MYCODERM (MICONAZOLE NITRATE) [Concomitant]
     Route: 065
  31. ACYCLOVIR [Concomitant]
     Route: 065

REACTIONS (13)
  - ANGINA PECTORIS [None]
  - ATRIAL FIBRILLATION [None]
  - BLOOD TRIGLYCERIDES INCREASED [None]
  - CARDIAC VALVE DISEASE [None]
  - COLONOSCOPY [None]
  - DRUG HYPERSENSITIVITY [None]
  - HEART RATE IRREGULAR [None]
  - INJURY [None]
  - MYOCARDIAL INFARCTION [None]
  - OCCULT BLOOD POSITIVE [None]
  - SKIN CANCER [None]
  - SLEEP APNOEA SYNDROME [None]
  - TRANSIENT ISCHAEMIC ATTACK [None]
